FAERS Safety Report 9787908 (Version 1)
Quarter: 2013Q4

REPORT INFORMATION
  Report Type: Spontaneous
  Country: US (occurrence: None)
  Receive Date: 20131227
  Receipt Date: 20131227
  Transmission Date: 20140711
  Serious: Yes (Disabling, Other)
  Sender: FDA-Public Use
  Company Number: None

PATIENT
  Age: 54 Year
  Sex: Male
  Weight: 83.92 kg

DRUGS (1)
  1. TECFIDERA 240MG BIOGEN IDEC [Suspect]
     Indication: MULTIPLE SCLEROSIS
     Dosage: 2 PILLS DAILY  TWICE DAILY TAKEN BY MOUTH
     Route: 048

REACTIONS (1)
  - Multiple sclerosis relapse [None]
